FAERS Safety Report 5740278-5 (Version None)
Quarter: 2008Q2

REPORT INFORMATION
  Report Type: 
  Country: None (occurrence: None)
  Receive Date: 20080513
  Receipt Date: 20080428
  Transmission Date: 20081010
  Serious: Yes (Hospitalization, Other)
  Sender: FDA-Public Use
  Company Number: DSU-2008-00628

PATIENT
  Age: 60 Year
  Sex: Male

DRUGS (7)
  1. OLMESARTAN MEDOXOMIL [Suspect]
     Indication: HYPERTENSION
     Dosage: 20 MG (20 MG, QD), PER ORAL
     Route: 048
     Dates: start: 20080306, end: 20080328
  2. INDAPAMIDE (INDAPAMIDE) (TABLET) (INDAPAMIDE) [Suspect]
     Indication: HYPERTENSION
     Dosage: 1.5 MG (1.5 MG, QD), PARAVENOUS
     Route: 042
     Dates: start: 20080306, end: 20080328
  3. CARVEDILOL (CARVEDILOL) (TABLET) (CARVEDILOL) [Suspect]
     Indication: HYPERTENSION
     Dosage: 50 MG (25 MG, BID), PER ORAL
     Route: 048
     Dates: start: 20080306, end: 20080428
  4. PIOGLITAZONE (PIOGLITAZONE)(PIOGLITAZONE) [Concomitant]
  5. METFORMIN (METFORMIN) (METFORMIN) [Concomitant]
  6. NPH INSULIN (INSULIN INJECTION, ISOPHANE)(INSULIN INJECTION, ISOPHANE) [Concomitant]
  7. GABAPENTIN (GABAPENTIN)(GABAPENTIN) [Concomitant]

REACTIONS (3)
  - ARTERIOSCLEROSIS CORONARY ARTERY [None]
  - CORONARY ARTERY DISEASE [None]
  - MYOCARDIAL ISCHAEMIA [None]
